FAERS Safety Report 6388657-X (Version None)
Quarter: 2009Q4

REPORT INFORMATION
  Report Type: 
  Country: None (occurrence: None)
  Receive Date: 20091005
  Receipt Date: 20090929
  Transmission Date: 20100525
  Serious: Yes (Hospitalization)
  Sender: FDA-Public Use
  Company Number: US-CUBIST-2009S1000316

PATIENT

DRUGS (1)
  1. CUBICIN [Suspect]
     Indication: OSTEOMYELITIS
     Route: 065

REACTIONS (2)
  - INFLUENZA [None]
  - PNEUMONITIS [None]
